FAERS Safety Report 23064338 (Version 1)
Quarter: 2023Q4

REPORT INFORMATION
  Report Type: Spontaneous
  Country: US (occurrence: None)
  Receive Date: 20231011
  Receipt Date: 20231011
  Transmission Date: 20240110
  Serious: Yes (Other)
  Sender: FDA-Public Use
  Company Number: None

PATIENT
  Age: 36 Year
  Sex: Female
  Weight: 72.57 kg

DRUGS (1)
  1. MIRENA [Suspect]
     Active Substance: LEVONORGESTREL

REACTIONS (4)
  - Uterine leiomyoma [None]
  - Vaginal haemorrhage [None]
  - Ovarian cyst [None]
  - Device expulsion [None]

NARRATIVE: CASE EVENT DATE: 20230928
